FAERS Safety Report 4477712-7 (Version None)
Quarter: 2004Q4

REPORT INFORMATION
  Report Type: 
  Country: None (occurrence: None)
  Receive Date: 20041014
  Receipt Date: 20041004
  Transmission Date: 20050328
  Serious: Yes (Death, Hospitalization)
  Sender: FDA-Public Use
  Company Number: 200410509BFR

PATIENT
  Age: 51 Year
  Sex: Female

DRUGS (15)
  1. CIPROFLOXACIN HCL [Suspect]
     Indication: FEBRILE BONE MARROW APLASIA
  2. CIPROFLOXACIN HCL [Suspect]
     Indication: PYREXIA
  3. CIPROFLOXACIN HCL [Suspect]
     Indication: STOMATITIS
  4. OROKEN (CEFIXIME) [Suspect]
     Indication: PYREXIA
     Dosage: ORAL
     Route: 048
     Dates: start: 20040814
  5. LEVOTHYROX [Concomitant]
  6. MOPRAL [Concomitant]
  7. TRIFLUCAN [Concomitant]
  8. VALACYCLOVIR HCL [Concomitant]
  9. INNOHEP [Concomitant]
  10. VINCRISTINE [Concomitant]
  11. NOVANTRONE [Concomitant]
  12. ARACYTINE [Concomitant]
  13. DAUNORUBICINE [Concomitant]
  14. FORTUM [Concomitant]
  15. TIENAM [Concomitant]

REACTIONS (15)
  - ALANINE AMINOTRANSFERASE INCREASED [None]
  - ASPARTATE AMINOTRANSFERASE INCREASED [None]
  - BLOOD ALKALINE PHOSPHATASE INCREASED [None]
  - BLOOD BILIRUBIN INCREASED [None]
  - CATHETER RELATED INFECTION [None]
  - DERMATITIS EXFOLIATIVE [None]
  - DIARRHOEA [None]
  - EOSINOPHILIA [None]
  - GENERAL PHYSICAL HEALTH DETERIORATION [None]
  - HYPERSENSITIVITY [None]
  - MULTI-ORGAN FAILURE [None]
  - PSEUDOMONAS INFECTION [None]
  - PYREXIA [None]
  - RENAL FAILURE ACUTE [None]
  - SHOCK [None]
